FAERS Safety Report 5282447-7 (Version None)
Quarter: 2007Q1

REPORT INFORMATION
  Report Type: 
  Country: None (occurrence: None)
  Receive Date: 20070326
  Receipt Date: 20070313
  Transmission Date: 20070707
  Serious: Yes (Death)
  Sender: FDA-Public Use
  Company Number: B0463061A

PATIENT
  Age: 39 Year
  Sex: Male

DRUGS (4)
  1. LITHIUM SALT (FORMULATION UNKNOWN) (LITHIUM SALT) [Suspect]
     Dosage: 200 MG/TWICE PER DAY
  2. AMITRIPTLINE HCL [Suspect]
     Dosage: 200 MG/PER DAY
  3. VALPROATE SODIUM [Suspect]
     Dosage: 500 MG/TWICE PER DAY
  4. HALOPERIDOL [Suspect]
     Dosage: 10 MG/THREE TIMES PER DAY

REACTIONS (4)
  - ANTIPSYCHOTIC DRUG LEVEL BELOW THERAPEUTIC [None]
  - BRUGADA SYNDROME [None]
  - DRUG LEVEL ABOVE THERAPEUTIC [None]
  - SUDDEN DEATH [None]
